FAERS Safety Report 23102894 (Version 1)
Quarter: 2023Q4

REPORT INFORMATION
  Report Type: Spontaneous
  Country: US (occurrence: None)
  Receive Date: 20231022
  Receipt Date: 20231022
  Transmission Date: 20240110
  Serious: Yes (Hospitalization)
  Sender: FDA-Public Use
  Company Number: None

PATIENT
  Age: 75 Year
  Sex: Male

DRUGS (2)
  1. AMLODIPINE BESYLATE [Suspect]
     Active Substance: AMLODIPINE BESYLATE
     Dates: start: 20230105, end: 20230211
  2. LOSARTAN [Suspect]
     Active Substance: LOSARTAN
     Dates: start: 20230105, end: 20230211

REACTIONS (4)
  - Dizziness [None]
  - Hypotension [None]
  - Syncope [None]
  - Ventricular tachycardia [None]

NARRATIVE: CASE EVENT DATE: 20230209
